FAERS Safety Report 14706746 (Version 1)
Quarter: 2018Q2

REPORT INFORMATION
  Report Type: Spontaneous
  Country: US (occurrence: US)
  Receive Date: 20180402
  Receipt Date: 20180402
  Transmission Date: 20180711
  Serious: No
  Sender: FDA-Public Use
  Company Number: US-BRISTOL-MYERS SQUIBB COMPANY-BMS-2018-028007

PATIENT
  Sex: Male

DRUGS (1)
  1. ELIQUIS [Suspect]
     Active Substance: APIXABAN
     Indication: PRODUCT USED FOR UNKNOWN INDICATION
     Dosage: UNK
     Route: 065
     Dates: start: 20180323

REACTIONS (7)
  - Chest pain [Unknown]
  - Anxiety [Unknown]
  - Dysgeusia [Unknown]
  - Burning sensation [Unknown]
  - Emotional distress [Unknown]
  - Thinking abnormal [Unknown]
  - Insomnia [Unknown]
